FAERS Safety Report 11212938 (Version 1)
Quarter: 2015Q2

REPORT INFORMATION
  Report Type: Spontaneous
  Country: None (occurrence: None)
  Receive Date: 20150622
  Receipt Date: 20150622
  Transmission Date: 20150821
  Serious: No
  Sender: FDA-Public Use
  Company Number: None

PATIENT
  Sex: Male
  Weight: 74.39 kg

DRUGS (1)
  1. SUMATRIPTAN 25MG MYLAN [Suspect]
     Active Substance: SUMATRIPTAN
     Indication: MIGRAINE
     Dosage: ONE ONSET HA ORAL
     Route: 048
     Dates: start: 20101029

REACTIONS (2)
  - Drug ineffective [None]
  - Product substitution issue [None]
